FAERS Safety Report 13065910 (Version 1)
Quarter: 2016Q4

REPORT INFORMATION
  Report Type: Spontaneous
  Country: RU (occurrence: RU)
  Receive Date: 20161227
  Receipt Date: 20161227
  Transmission Date: 20170207
  Serious: Yes (Other)
  Sender: FDA-Public Use
  Company Number: RU-GLAXOSMITHKLINE-RU2016GSK188304

PATIENT
  Age: 8 Year
  Sex: Female
  Weight: 28 kg

DRUGS (4)
  1. AUGMENTIN [Suspect]
     Active Substance: AMOXICILLIN\CLAVULANATE POTASSIUM
     Indication: PRODUCT USED FOR UNKNOWN INDICATION
     Dosage: UNK
  2. ZINNAT [Suspect]
     Active Substance: CEFUROXIME AXETIL
     Indication: PYREXIA
     Dosage: 125 MG, UNK
  3. ZINNAT [Suspect]
     Active Substance: CEFUROXIME AXETIL
     Indication: PHARYNGEAL ERYTHEMA
  4. ZINNAT [Suspect]
     Active Substance: CEFUROXIME AXETIL
     Indication: BRONCHITIS

REACTIONS (4)
  - Pneumonia [Unknown]
  - Angioedema [Unknown]
  - Drug ineffective [Unknown]
  - Dermatitis allergic [Unknown]
